FAERS Safety Report 18480581 (Version 1)
Quarter: 2020Q4

REPORT INFORMATION
  Report Type: Spontaneous
  Country: FR (occurrence: FR)
  Receive Date: 20201109
  Receipt Date: 20201109
  Transmission Date: 20210114
  Serious: Yes (Disabling)
  Sender: FDA-Public Use
  Company Number: FR-MYLANLABS-2020M1092452

PATIENT
  Age: 65 Year
  Sex: Female
  Weight: 73 kg

DRUGS (13)
  1. DULOXETINE                         /01749302/ [Suspect]
     Active Substance: DULOXETINE
     Indication: PRODUCT USED FOR UNKNOWN INDICATION
     Dosage: 1 DOSAGE FORM, QD
     Route: 048
     Dates: start: 20200904, end: 20200905
  2. FUROSEMIDE. [Concomitant]
     Active Substance: FUROSEMIDE
     Dosage: UNK
  3. ABASAGLAR [Concomitant]
     Active Substance: INSULIN GLARGINE
     Dosage: UNK
  4. CEFOTAXIME [Suspect]
     Active Substance: CEFOTAXIME SODIUM
     Indication: BACTERIAL INFECTION
     Dosage: 2 GRAM, QD
     Route: 042
     Dates: start: 20200820, end: 20200907
  5. OXYCODONE [Suspect]
     Active Substance: OXYCODONE
     Indication: PRODUCT USED FOR UNKNOWN INDICATION
     Dosage: 1 DOSAGE FORM, QD
     Route: 048
     Dates: start: 20200905
  6. CALCIPARINE [Concomitant]
     Active Substance: HEPARIN CALCIUM
     Dosage: UNK
  7. ACIDE FOLIQUE [Suspect]
     Active Substance: FOLIC ACID
     Indication: PRODUCT USED FOR UNKNOWN INDICATION
     Dosage: UNK
     Route: 048
     Dates: start: 20200822, end: 20200906
  8. ACICLOVIR MYLAN [Suspect]
     Active Substance: ACYCLOVIR
     Indication: VIRAL INFECTION
     Dosage: 350 MILLIGRAM, QD
     Route: 042
     Dates: start: 20200903, end: 20200910
  9. SEVELAMER [Suspect]
     Active Substance: SEVELAMER
     Indication: PRODUCT USED FOR UNKNOWN INDICATION
     Dosage: 3 DOSAGE FORM, QD
     Route: 048
     Dates: start: 20200825, end: 20200905
  10. FLUCONAZOLE KABI [Suspect]
     Active Substance: FLUCONAZOLE
     Indication: PRODUCT USED FOR UNKNOWN INDICATION
     Dosage: 1 DOSAGE FORM, QD
     Route: 048
     Dates: start: 20200903, end: 20200922
  11. DAPTOMYCINE [Concomitant]
     Active Substance: DAPTOMYCIN
     Dosage: UNK
  12. PANTOPRAZOLE [Concomitant]
     Active Substance: PANTOPRAZOLE
     Dosage: UNK
  13. NOVORAPID [Concomitant]
     Active Substance: INSULIN ASPART
     Dosage: UNK

REACTIONS (1)
  - Encephalopathy [Not Recovered/Not Resolved]

NARRATIVE: CASE EVENT DATE: 20200905
